FAERS Safety Report 11353205 (Version 1)
Quarter: 2015Q3

REPORT INFORMATION
  Report Type: Spontaneous
  Country: US (occurrence: US)
  Receive Date: 20150807
  Receipt Date: 20150807
  Transmission Date: 20151125
  Serious: No
  Sender: FDA-Public Use
  Company Number: US-JNJFOC-20140619040

PATIENT
  Sex: Male

DRUGS (2)
  1. ROGAINE 5% FOAM [Suspect]
     Active Substance: MINOXIDIL
     Route: 061
  2. ROGAINE 5% FOAM [Suspect]
     Active Substance: MINOXIDIL
     Indication: PRODUCT USED FOR UNKNOWN INDICATION
     Route: 061

REACTIONS (3)
  - Pain [Unknown]
  - Loss of libido [Unknown]
  - Erythema [Unknown]
